FAERS Safety Report 9400902 (Version 2)
Quarter: 2013Q3

REPORT INFORMATION
  Report Type: Spontaneous
  Country: CN (occurrence: None)
  Receive Date: 20130711
  Receipt Date: 20130927
  Transmission Date: 20140515
  Serious: Yes (Death, Hospitalization)
  Sender: FDA-Public Use
  Company Number: ENT 2013-0116

PATIENT
  Age: 67 Year
  Sex: Male

DRUGS (4)
  1. COMTAN [Suspect]
     Indication: PARKINSON^S DISEASE
     Route: 048
  2. MADOPAR [Concomitant]
  3. MEDOPA [Concomitant]
  4. BAYASPIRIN [Concomitant]

REACTIONS (8)
  - Acute leukaemia [None]
  - Platelet count decreased [None]
  - Depressed level of consciousness [None]
  - Pyrexia [None]
  - Anaemia [None]
  - Thrombocytopenia [None]
  - Leukocytosis [None]
  - Mouth ulceration [None]
